FAERS Safety Report 25547642 (Version 1)
Quarter: 2025Q3

REPORT INFORMATION
  Report Type: Spontaneous
  Country: EU (occurrence: EU)
  Receive Date: 20250714
  Receipt Date: 20250714
  Transmission Date: 20251021
  Serious: Yes (Hospitalization, Other)
  Sender: Norvium Bioscience
  Company Number: EU-Norvium Bioscience LLC-080386

PATIENT
  Age: 65 Year
  Sex: Male
  Weight: 0 kg

DRUGS (2)
  1. OXALIPLATIN [Suspect]
     Active Substance: OXALIPLATIN
     Indication: Rectal adenocarcinoma
     Route: 042
     Dates: start: 20230918
  2. XELODA [Suspect]
     Active Substance: CAPECITABINE
     Indication: Rectal adenocarcinoma
     Dosage: 4 TABLETS OF 500 MG
     Route: 048
     Dates: start: 20230918

REACTIONS (7)
  - Cardiotoxicity [Unknown]
  - Atrial fibrillation [Recovered/Resolved]
  - Myocardial infarction [Unknown]
  - Cardiac failure [Unknown]
  - Ventricular fibrillation [Recovered/Resolved]
  - Myocarditis [Unknown]
  - Arteriospasm coronary [Unknown]

NARRATIVE: CASE EVENT DATE: 20230901
